FAERS Safety Report 6760810-2 (Version None)
Quarter: 2010Q2

REPORT INFORMATION
  Report Type: 
  Country: None (occurrence: None)
  Receive Date: 20100607
  Receipt Date: 20100607
  Transmission Date: 20101027
  Serious: Yes (Other)
  Sender: FDA-Public Use
  Company Number: None

PATIENT
  Sex: Female
  Weight: 63.5036 kg

DRUGS (12)
  1. ABILIFY [Suspect]
     Indication: CEREBROVASCULAR ACCIDENT
     Dosage: 2 MG ONCE NIGHTLY PO
     Route: 048
     Dates: start: 20090801, end: 20100115
  2. ABILIFY [Suspect]
     Indication: DEPRESSION
     Dosage: 2 MG ONCE NIGHTLY PO
     Route: 048
     Dates: start: 20090801, end: 20100115
  3. NEURONTIN [Concomitant]
  4. ALTACE [Concomitant]
  5. LASIX [Concomitant]
  6. POTASSIUM CHLORIDE [Concomitant]
  7. HYDROCODONE BITARTRATE AND ACETAMINOPHEN [Concomitant]
  8. CELEBREX [Concomitant]
  9. NORVASC [Concomitant]
  10. CYMBALTA [Concomitant]
  11. FOSAMAX [Concomitant]
  12. CALCIUM WITH VITAMIN D [Concomitant]

REACTIONS (2)
  - DYSKINESIA [None]
  - HYPERHIDROSIS [None]
